FAERS Safety Report 15556820 (Version 1)
Quarter: 2018Q4

REPORT INFORMATION
  Report Type: Report from Study
  Country: GB (occurrence: GB)
  Receive Date: 20181026
  Receipt Date: 20181026
  Transmission Date: 20190205
  Serious: Yes (Hospitalization)
  Sender: FDA-Public Use
  Company Number: GB-JNJFOC-20181026773

PATIENT

DRUGS (2)
  1. INFLIXIMAB, RECOMBINANT [Suspect]
     Active Substance: INFLIXIMAB
     Indication: RHEUMATOID ARTHRITIS
     Route: 042
  2. GOLIMUMAB [Suspect]
     Active Substance: GOLIMUMAB
     Indication: RHEUMATOID ARTHRITIS
     Route: 058

REACTIONS (23)
  - Legionella infection [Unknown]
  - Pneumonia [Unknown]
  - Urinary tract infection [Unknown]
  - Skin infection [Unknown]
  - Lung infection [Unknown]
  - Arthritis infective [Unknown]
  - Drug ineffective [Unknown]
  - Lower respiratory tract infection [Unknown]
  - Viraemia [Unknown]
  - Soft tissue infection [Unknown]
  - Sepsis [Unknown]
  - Splenic infection [Unknown]
  - Bacteraemia [Unknown]
  - Osteomyelitis [Unknown]
  - Eye infection [Unknown]
  - Listeriosis [Unknown]
  - Influenza [Unknown]
  - Aspergillus infection [Unknown]
  - Infection [Unknown]
  - Fungal infection [Unknown]
  - Upper respiratory tract infection [Unknown]
  - Bacterial infection [Unknown]
  - Gastrointestinal infection [Unknown]
